FAERS Safety Report 7627196-2 (Version None)
Quarter: 2011Q3

REPORT INFORMATION
  Report Type: 
  Country: None (occurrence: None)
  Receive Date: 20110721
  Receipt Date: 20110718
  Transmission Date: 20111222
  Serious: No
  Sender: FDA-Public Use
  Company Number: US-BAYER-2011-062810

PATIENT
  Sex: Female

DRUGS (3)
  1. YAZ [Interacting]
     Dosage: UNK
     Dates: start: 20110101
  2. YAZ [Suspect]
     Dosage: UNK
     Dates: start: 20090101, end: 20100101
  3. DILANTIN [Interacting]
     Indication: CONVULSION
     Dosage: UNK

REACTIONS (6)
  - FEELING ABNORMAL [None]
  - MALAISE [None]
  - FATIGUE [None]
  - MENSTRUATION IRREGULAR [None]
  - MENSTRUATION DELAYED [None]
  - IRRITABILITY [None]
